FAERS Safety Report 6885293-3 (Version None)
Quarter: 2010Q3

REPORT INFORMATION
  Report Type: 
  Country: None (occurrence: None)
  Receive Date: 20100729
  Receipt Date: 20100729
  Transmission Date: 20110219
  Serious: Yes (Hospitalization)
  Sender: FDA-Public Use
  Company Number: None

PATIENT
  Age: 50 Year
  Sex: Male
  Weight: 84 kg

DRUGS (2)
  1. CODEINE/GUAIFENESIN [Suspect]
     Indication: UPPER RESPIRATORY TRACT INFECTION
     Dosage: 5 ML QID PO
     Route: 048
     Dates: start: 20100725, end: 20100726
  2. CLARITHROMYCIN [Suspect]
     Indication: GASTRITIS
     Dosage: 500 MG BID PO
     Route: 048
     Dates: start: 20100714, end: 20100726

REACTIONS (2)
  - ASTHENIA [None]
  - SYNCOPE [None]
